FAERS Safety Report 22597465 (Version 1)
Quarter: 2023Q2

REPORT INFORMATION
  Report Type: Spontaneous
  Country: GB (occurrence: GB)
  Receive Date: 20230614
  Receipt Date: 20230614
  Transmission Date: 20230721
  Serious: Yes (Other)
  Sender: FDA-Public Use
  Company Number: None

PATIENT
  Age: 41 Year
  Sex: Male
  Weight: 85 kg

DRUGS (1)
  1. PAROXETINE [Suspect]
     Active Substance: PAROXETINE
     Indication: Autism spectrum disorder
     Dosage: 40 MG,  UNK (AM)

REACTIONS (3)
  - Alcohol abuse [Recovering/Resolving]
  - Anger [Unknown]
  - Aggression [Unknown]
